FAERS Safety Report 10109665 (Version 2)
Quarter: 2014Q2

REPORT INFORMATION
  Report Type: Spontaneous
  Country: US (occurrence: US)
  Receive Date: 20140425
  Receipt Date: 20140528
  Transmission Date: 20141212
  Serious: Yes (Death)
  Sender: FDA-Public Use
  Company Number: US-SA-2014SA048999

PATIENT
  Sex: Male

DRUGS (1)
  1. LOVENOX [Suspect]
     Indication: THROMBOSIS
     Route: 065

REACTIONS (1)
  - Death [Fatal]
